FAERS Safety Report 8437025-5 (Version None)
Quarter: 2012Q2

REPORT INFORMATION
  Report Type: 
  Country: None (occurrence: None)
  Receive Date: 20120614
  Receipt Date: 20120605
  Transmission Date: 20120825
  Serious: Yes (Other)
  Sender: FDA-Public Use
  Company Number: IN-ELI_LILLY_AND_COMPANY-IN201206001861

PATIENT

DRUGS (1)
  1. HUMALOG [Suspect]
     Dosage: UNK UNK, UNKNOWN
     Route: 064

REACTIONS (3)
  - OLIGOHYDRAMNIOS [None]
  - FOETAL GROWTH RESTRICTION [None]
  - FOETAL EXPOSURE DURING PREGNANCY [None]
